FAERS Safety Report 19117849 (Version 4)
Quarter: 2021Q2

REPORT INFORMATION
  Report Type: Spontaneous
  Country: JP (occurrence: JP)
  Receive Date: 20210409
  Receipt Date: 20210526
  Transmission Date: 20210717
  Serious: Yes (Hospitalization)
  Sender: FDA-Public Use
  Company Number: JP-ASTRAZENECA-2021A174645

PATIENT
  Age: 31733 Day
  Sex: Male
  Weight: 57 kg

DRUGS (16)
  1. LOKELMA [Suspect]
     Active Substance: SODIUM ZIRCONIUM CYCLOSILICATE
     Indication: HYPERKALAEMIA
     Route: 048
     Dates: start: 20201015, end: 20201015
  2. LIMAPROST ALFADEX [Concomitant]
     Active Substance: LIMAPROST
     Route: 048
  3. THYRADIN?S [Concomitant]
     Active Substance: LEVOTHYROXINE
     Route: 048
  4. LANSOPRAZOLE. [Concomitant]
     Active Substance: LANSOPRAZOLE
     Route: 048
  5. EQUA [Concomitant]
     Active Substance: VILDAGLIPTIN
     Indication: TYPE 2 DIABETES MELLITUS
     Route: 048
  6. LOKELMA [Suspect]
     Active Substance: SODIUM ZIRCONIUM CYCLOSILICATE
     Indication: HYPERKALAEMIA
     Route: 048
     Dates: start: 20201016
  7. DUVROQ [Concomitant]
     Active Substance: DAPRODUSTAT
     Indication: NEPHROGENIC ANAEMIA
     Route: 048
     Dates: start: 20201015
  8. CALONAL [Concomitant]
     Active Substance: ACETAMINOPHEN
     Indication: VASCULITIS
     Route: 048
  9. BROTIZOLAM [Concomitant]
     Active Substance: BROTIZOLAM
     Route: 048
  10. ROZEREM [Concomitant]
     Active Substance: RAMELTEON
     Route: 048
  11. AZILVA [Concomitant]
     Active Substance: AZILSARTAN KAMEDOXOMIL
     Indication: HYPERTENSION
     Route: 048
  12. GOOFICE [Concomitant]
     Active Substance: ELOBIXIBAT
     Route: 048
  13. TRAMCET [Concomitant]
     Active Substance: ACETAMINOPHEN\TRAMADOL
     Route: 048
  14. DAIKENCHUTO [Concomitant]
     Active Substance: HERBALS
     Route: 048
  15. URECE [Concomitant]
     Indication: HYPERKALAEMIA
     Route: 048
     Dates: start: 20201112
  16. VOLTAREN [Concomitant]
     Active Substance: DICLOFENAC SODIUM
     Indication: PAIN IN EXTREMITY
     Route: 065
     Dates: start: 202101

REACTIONS (5)
  - Hyperkalaemia [Recovered/Resolved]
  - Computerised tomogram abnormal [Recovered/Resolved]
  - Chronic kidney disease [Recovered/Resolved]
  - Enteritis infectious [Recovered/Resolved]
  - X-ray gastrointestinal tract abnormal [Unknown]

NARRATIVE: CASE EVENT DATE: 20210201
